FAERS Safety Report 22366222 (Version 1)
Quarter: 2023Q2

REPORT INFORMATION
  Report Type: Spontaneous
  Country: US (occurrence: US)
  Receive Date: 20230525
  Receipt Date: 20230525
  Transmission Date: 20230722
  Serious: Yes (Hospitalization)
  Sender: FDA-Public Use
  Company Number: US-JNJFOC-20230546569

PATIENT
  Age: 27 Year
  Sex: Male

DRUGS (1)
  1. ACETAMINOPHEN [Suspect]
     Active Substance: ACETAMINOPHEN
     Indication: Product used for unknown indication
     Route: 048

REACTIONS (6)
  - Suicide attempt [Unknown]
  - Methaemoglobinaemia [Unknown]
  - Haemolytic anaemia [Unknown]
  - Hepatic failure [Unknown]
  - Acute kidney injury [Unknown]
  - Intentional overdose [Unknown]
